FAERS Safety Report 21650607 (Version 1)
Quarter: 2022Q4

REPORT INFORMATION
  Report Type: Spontaneous
  Country: US (occurrence: None)
  Receive Date: 20221124
  Receipt Date: 20221124
  Transmission Date: 20230112
  Serious: No
  Sender: FDA-Public Use
  Company Number: None

PATIENT
  Age: 34 Year
  Sex: Male
  Weight: 85.5 kg

DRUGS (1)
  1. VICKS SINEX SEVERE [Suspect]
     Active Substance: OXYMETAZOLINE HYDROCHLORIDE
     Indication: Nasal decongestion therapy
     Dates: start: 20221109, end: 20221124

REACTIONS (9)
  - Epistaxis [None]
  - Burning sensation [None]
  - Nasal congestion [None]
  - Nasal inflammation [None]
  - Rhinorrhoea [None]
  - Product use issue [None]
  - Pain [None]
  - Hypoaesthesia [None]
  - Skin injury [None]

NARRATIVE: CASE EVENT DATE: 20221112
